FAERS Safety Report 15159231 (Version 2)
Quarter: 2018Q4

REPORT INFORMATION
  Report Type: Spontaneous
  Country: IT (occurrence: IT)
  Receive Date: 20180718
  Receipt Date: 20181107
  Transmission Date: 20190204
  Serious: Yes (Hospitalization)
  Sender: FDA-Public Use
  Company Number: IT-MYLANLABS-2018M1051899

PATIENT
  Age: 35 Year
  Sex: Male
  Weight: 76 kg

DRUGS (2)
  1. FLURBIPROFEN. [Suspect]
     Active Substance: FLURBIPROFEN
     Dosage: 1, UNK, UNK
     Route: 002
     Dates: start: 20171125, end: 20171125
  2. FLURBIPROFEN. [Suspect]
     Active Substance: FLURBIPROFEN
     Indication: PHARYNGITIS
     Dosage: 8.75 MG, UNK
     Route: 002
     Dates: start: 20171125, end: 20171125

REACTIONS (8)
  - Dysphonia [Recovering/Resolving]
  - Sense of oppression [Recovering/Resolving]
  - Angioedema [Recovering/Resolving]
  - Rash erythematous [Recovering/Resolving]
  - Lip oedema [Recovering/Resolving]
  - Urticaria [Recovering/Resolving]
  - Chest discomfort [Recovering/Resolving]
  - Periorbital oedema [Recovering/Resolving]

NARRATIVE: CASE EVENT DATE: 20171125
